FAERS Safety Report 8794800 (Version 2)
Quarter: 2012Q4

REPORT INFORMATION
  Report Type: Report from Study
  Country: SG (occurrence: SG)
  Receive Date: 20120917
  Receipt Date: 20120927
  Transmission Date: 20130627
  Serious: Yes (Hospitalization)
  Sender: FDA-Public Use
  Company Number: PHHO2012SG012826

PATIENT
  Age: 46 Year
  Sex: Male
  Weight: 94.6 kg

DRUGS (8)
  1. ACETYLSALICYLIC ACID [Suspect]
  2. BLINDED ENALAPRIL [Suspect]
     Indication: CARDIAC FAILURE CHRONIC
     Dosage: Code not broken
     Route: 048
     Dates: start: 20110110, end: 20120903
  3. BLINDED LCZ696 [Suspect]
     Indication: CARDIAC FAILURE CHRONIC
     Dosage: Code not broken
     Route: 048
     Dates: start: 20110110, end: 20120903
  4. BLINDED NO TREATMENT RECEIVED [Suspect]
     Indication: CARDIAC FAILURE CHRONIC
     Dosage: Code not broken
     Route: 048
     Dates: start: 20110110, end: 20120903
  5. BLINDED ENALAPRIL [Suspect]
     Dosage: Code not broken
     Route: 048
     Dates: start: 20120904
  6. BLINDED LCZ696 [Suspect]
     Dosage: Code not broken
     Route: 048
     Dates: start: 20120904
  7. BLINDED NO TREATMENT RECEIVED [Suspect]
     Dosage: Code not broken
     Route: 048
     Dates: start: 20120904
  8. FUROSEMIDE [Concomitant]

REACTIONS (1)
  - Cholecystitis acute [Not Recovered/Not Resolved]
